FAERS Safety Report 4364653-9 (Version None)
Quarter: 2004Q2

REPORT INFORMATION
  Report Type: 
  Country: None (occurrence: None)
  Receive Date: 20040521
  Receipt Date: 20040504
  Transmission Date: 20050107
  Serious: Yes (Other)
  Sender: FDA-Public Use
  Company Number: USA040566598

PATIENT
  Age: 64 Year
  Sex: Female
  Weight: 91 kg

DRUGS (3)
  1. HUMALOG [Suspect]
     Dosage: 5 U AS NEEDED
  2. ILETIN-PORK NOH INSULIN (INSULIN, ANIMAL) [Suspect]
     Dosage: 45 U/2 DAY
     Dates: start: 19840101
  3. HUMULIN N [Suspect]
     Dates: start: 19920101

REACTIONS (6)
  - BLOOD CHOLESTEROL INCREASED [None]
  - BLOOD GLUCOSE INCREASED [None]
  - CARDIAC DISORDER [None]
  - HYPERTENSION [None]
  - MYOCARDIAL INFARCTION [None]
  - PERSONALITY CHANGE [None]
